FAERS Safety Report 17100045 (Version 14)
Quarter: 2020Q1

REPORT INFORMATION
  Report Type: Report from Study
  Country: FR (occurrence: FR)
  Receive Date: 20191202
  Receipt Date: 20200214
  Transmission Date: 20200409
  Serious: Yes (Hospitalization, Other)
  Sender: FDA-Public Use
  Company Number: FR-EISAI MEDICAL RESEARCH-EC-2019-066165

PATIENT
  Age: 56 Year
  Sex: Male
  Weight: 133 kg

DRUGS (14)
  1. PEMBROLIZUMAB. [Suspect]
     Active Substance: PEMBROLIZUMAB
     Route: 041
     Dates: start: 20191230, end: 20191230
  2. PEMBROLIZUMAB. [Suspect]
     Active Substance: PEMBROLIZUMAB
     Route: 041
     Dates: start: 20200120, end: 20200120
  3. LASILIX [Concomitant]
     Active Substance: FUROSEMIDE
     Dates: start: 20191028, end: 20191202
  4. ALDACTONE [Concomitant]
     Active Substance: SPIRONOLACTONE
     Dates: start: 20190516, end: 20191202
  5. LENVATINIB [Suspect]
     Active Substance: LENVATINIB
     Route: 048
     Dates: start: 20191209, end: 20200209
  6. OROZAMUDOL [Concomitant]
     Active Substance: TRAMADOL
     Dates: start: 20190704
  7. PEMBROLIZUMAB. [Suspect]
     Active Substance: PEMBROLIZUMAB
     Indication: HEPATOCELLULAR CARCINOMA
     Route: 041
     Dates: start: 20191119, end: 20191119
  8. DUPHALAC [Concomitant]
     Active Substance: LACTULOSE
     Dates: start: 20190704, end: 20191125
  9. PEMBROLIZUMAB. [Suspect]
     Active Substance: PEMBROLIZUMAB
     Route: 041
     Dates: start: 20191209, end: 20191209
  10. PANTOPRAZOLE [Concomitant]
     Active Substance: PANTOPRAZOLE
     Dates: start: 20190515
  11. VOGALENE [Concomitant]
     Active Substance: METOPIMAZINE
     Dates: start: 20191028
  12. DEXERYL [Concomitant]
     Dates: start: 20191028
  13. LENVATINIB [Suspect]
     Active Substance: LENVATINIB
     Indication: HEPATOCELLULAR CARCINOMA
     Route: 048
     Dates: start: 20191119, end: 20191124
  14. SPASFON [Concomitant]
     Dates: start: 20190704

REACTIONS (2)
  - Hepatic encephalopathy [Recovered/Resolved]
  - Blood bilirubin increased [Recovered/Resolved]

NARRATIVE: CASE EVENT DATE: 20191124
